FAERS Safety Report 5355851-6 (Version None)
Quarter: 2007Q2

REPORT INFORMATION
  Report Type: 
  Country: None (occurrence: None)
  Receive Date: 20070611
  Receipt Date: 20070611
  Transmission Date: 20071010
  Serious: Yes (Hospitalization)
  Sender: FDA-Public Use
  Company Number: None

PATIENT
  Sex: Male
  Weight: 66.75 kg

DRUGS (4)
  1. DAUNORUBICIN HCL [Suspect]
     Dosage: 90 MG
  2. PEG-L-ASPARAGINASE (K-H) [Suspect]
     Dosage: 4500 IU
  3. PREDNISONE TAB [Suspect]
     Dosage: 1134 MG
  4. VINCRISTINE SULFATE [Suspect]
     Dosage: 4 MG

REACTIONS (9)
  - AEROMONA INFECTION [None]
  - CANDIDIASIS [None]
  - DISSEMINATED INTRAVASCULAR COAGULATION [None]
  - GASTROINTESTINAL HAEMORRHAGE [None]
  - HYPOTENSION [None]
  - HYPOXIA [None]
  - LEFT VENTRICULAR FAILURE [None]
  - RENAL FAILURE [None]
  - RESPIRATORY ARREST [None]
